FAERS Safety Report 24752283 (Version 1)
Quarter: 2024Q4

REPORT INFORMATION
  Report Type: Spontaneous
  Country: GB (occurrence: GB)
  Receive Date: 20241219
  Receipt Date: 20241219
  Transmission Date: 20250114
  Serious: Yes (Other)
  Sender: TEVA
  Company Number: GB-MHRA-TPP45640243C5740144YC1733734289218

PATIENT
  Age: 67 Year
  Sex: Female
  Weight: 66 kg

DRUGS (23)
  1. DOXYCYCLINE [Suspect]
     Active Substance: DOXYCYCLINE
     Indication: Ill-defined disorder
     Dosage: TAKE TWO CAPSULES NOW ON DAY 1 THEN TAKE ONE CA...
     Route: 065
     Dates: start: 20240909, end: 20240924
  2. ATORVASTATIN [Concomitant]
     Active Substance: ATORVASTATIN
     Indication: Ill-defined disorder
     Dosage: DAILY DOSE: 1 DOSAGE FORM
     Dates: start: 20240131
  3. DERMATONICS ONCE HEEL [Concomitant]
     Indication: Ill-defined disorder
     Dosage: APPLY TO DRY SKIN ON FEET ONCE DAILY
     Dates: start: 20230628
  4. CLARITHROMYCIN [Concomitant]
     Active Substance: CLARITHROMYCIN
     Indication: Ill-defined disorder
     Dosage: DAILY DOSE: 1 DOSAGE FORM; FOR 5 DAYS, TO TREA...
     Dates: start: 20241113, end: 20241118
  5. LERCANIDIPINE HYDROCHLORIDE [Concomitant]
     Active Substance: LERCANIDIPINE HYDROCHLORIDE
     Indication: Ill-defined disorder
     Dosage: DAILY DOSE: 1 DOSAGE FORM
     Dates: start: 20220630
  6. AMOXICILLIN [Concomitant]
     Active Substance: AMOXICILLIN
     Indication: Ill-defined disorder
     Dosage: DAILY DOSE: 2 DOSAGE FORM
     Dates: start: 20220629
  7. AGAMATRIX ULTRA-THIN [Concomitant]
     Indication: Ill-defined disorder
     Dosage: USE AS DIRECTED
     Dates: start: 20211206
  8. THEOPHYLLINE ANHYDROUS [Concomitant]
     Active Substance: THEOPHYLLINE ANHYDROUS
     Indication: Ill-defined disorder
     Dosage: DAILY DOSE: 2 DOSAGE FORM
     Dates: start: 20180726
  9. SYSTANE BALANCE [Concomitant]
     Active Substance: PROPYLENE GLYCOL
     Indication: Ill-defined disorder
     Dosage: USE AS DIRECTED
     Dates: start: 20241015
  10. CIPROFLOXACIN [Concomitant]
     Active Substance: CIPROFLOXACIN
     Indication: Ill-defined disorder
     Dosage: DAILY DOSE: 1 DOSAGE FORM; 10 DAYS; DURATION: 11 DAYS
     Dates: start: 20241120, end: 20241130
  11. AMOXICILLIN\CLAVULANATE POTASSIUM [Concomitant]
     Active Substance: AMOXICILLIN\CLAVULANATE POTASSIUM
     Indication: Ill-defined disorder
     Dosage: TIME INTERVAL: 0.33333333 DAYS: DAILY DOSE: 1 DOSAGE FORM/DAY FOR 7 DAYS; DURATION :
     Dates: start: 20241007, end: 20241014
  12. ESOMEPRAZOLE [Concomitant]
     Active Substance: ESOMEPRAZOLE
     Indication: Ill-defined disorder
     Dosage: DAILY DOSE: 1 DOSAGE FORM
     Dates: start: 20240503
  13. PREDNISOLONE [Concomitant]
     Active Substance: PREDNISOLONE
     Indication: Ill-defined disorder
     Dosage: TAKE SIX  TABLETS EACH MORNING FOR 5 DAYS THEN REDUCE BY 5MG DAILY UNTILL STOP
     Dates: start: 20241120, end: 20241125
  14. QUININE SULFATE [Concomitant]
     Active Substance: QUININE SULFATE
     Indication: Ill-defined disorder
     Dosage: ONE AT NIGHT
     Dates: start: 20210701
  15. WAVESENSE JAZZ [Concomitant]
     Indication: Ill-defined disorder
     Dosage: USE AS DIRECTED
     Dates: start: 20211206
  16. EASYCHAMBER SPACER [Concomitant]
     Indication: Ill-defined disorder
     Dosage: USE AS DIRECTED
     Dates: start: 20241120
  17. MAXITROL [Concomitant]
     Active Substance: DEXAMETHASONE\NEOMYCIN SULFATE\POLYMYXIN B SULFATE
     Indication: Ill-defined disorder
     Dosage: AS DIRECTED BY EYE CLINIC
     Dates: start: 20241007, end: 20241017
  18. ALBUTEROL [Concomitant]
     Active Substance: ALBUTEROL
     Indication: Ill-defined disorder
     Dosage: STAT
     Dates: start: 20180726
  19. RAMIPRIL [Concomitant]
     Active Substance: RAMIPRIL
     Indication: Ill-defined disorder
     Dates: start: 20230503
  20. CARBOCYSTEINE [Concomitant]
     Active Substance: CARBOCYSTEINE
     Indication: Ill-defined disorder
     Dosage: TIME INTERVAL: 0.33333333 DAYS: DAILY DOSE: 3 DOSAGE FORM
     Route: 065
     Dates: start: 20201127
  21. SHARPSGUARD [Concomitant]
     Indication: Ill-defined disorder
     Dosage: USE AS DIRECTED
     Dates: start: 20211206
  22. TIOTROPIUM BROMIDE [Concomitant]
     Active Substance: TIOTROPIUM BROMIDE
     Indication: Ill-defined disorder
     Dosage: INHALE 1 DOSE ONCE DAILY (DO NOT SWALLOW)
     Route: 055
     Dates: start: 20240523
  23. BECLOMETHASONE\FORMOTEROL [Concomitant]
     Active Substance: BECLOMETHASONE\FORMOTEROL
     Indication: Ill-defined disorder
     Dosage: INHALE TWO PUFFS TWICE A DAY
     Route: 055
     Dates: start: 20240717

REACTIONS (2)
  - Abdominal pain [Recovered/Resolved]
  - Vomiting [Unknown]
